FAERS Safety Report 4898557-X (Version None)
Quarter: 2006Q1

REPORT INFORMATION
  Report Type: 
  Country: None (occurrence: None)
  Receive Date: 20060130
  Receipt Date: 20060119
  Transmission Date: 20060701
  Serious: Yes (Death)
  Sender: FDA-Public Use
  Company Number: 221334

PATIENT
  Age: 54 Year
  Sex: Male
  Weight: 49.5 kg

DRUGS (1)
  1. AVASTIN [Suspect]
     Indication: COLORECTAL CANCER METASTATIC
     Dosage: 247, Q2W, INTRAVENOUS
     Route: 042
     Dates: start: 20050927

REACTIONS (1)
  - DEATH [None]
